FAERS Safety Report 7990614-4 (Version None)
Quarter: 2011Q4

REPORT INFORMATION
  Report Type: 
  Country: None (occurrence: None)
  Receive Date: 20111215
  Receipt Date: 20111128
  Transmission Date: 20120403
  Serious: Yes (Other)
  Sender: FDA-Public Use
  Company Number: JPI-P-008051

PATIENT
  Age: 28 Year
  Sex: Female
  Weight: 56.6996 kg

DRUGS (17)
  1. XYREM [Suspect]
     Indication: NARCOLEPSY
     Dosage: SEE IMAGE
     Route: 048
     Dates: start: 20090811
  2. XYREM [Suspect]
     Indication: NARCOLEPSY
     Dosage: SEE IMAGE
     Route: 048
     Dates: start: 20090702, end: 20090801
  3. XYREM [Suspect]
     Indication: NARCOLEPSY
     Dosage: SEE IMAGE
     Route: 048
     Dates: start: 20110101
  4. XYREM [Suspect]
     Indication: NARCOLEPSY
     Dosage: SEE IMAGE
     Route: 048
     Dates: start: 20090601, end: 20090701
  5. XYREM [Suspect]
     Indication: NARCOLEPSY
     Dosage: SEE IMAGE
     Route: 048
     Dates: start: 20090605, end: 20090601
  6. XYREM [Suspect]
     Indication: NARCOLEPSY
     Dosage: SEE IMAGE
     Route: 048
     Dates: start: 20090801, end: 20090810
  7. XYREM [Suspect]
     Indication: NARCOLEPSY
     Dosage: SEE IMAGE
     Route: 048
     Dates: start: 20090823, end: 20110101
  8. XYREM [Suspect]
     Indication: NARCOLEPSY
     Dosage: SEE IMAGE
     Route: 048
     Dates: start: 20110101, end: 20110101
  9. HYDROCODONE BITARTRATE AND ACETAMINOPHEN [Suspect]
     Indication: PAIN
     Dosage: 7.5 MG/100 MG (7.5 MG/100 MG)
     Dates: start: 20090715, end: 20090720
  10. HYDROCODONE BITARTRATE AND ACETAMINOPHEN [Suspect]
     Indication: OVARIAN CYST RUPTURED
     Dosage: 7.5 MG/100 MG (7.5 MG/100 MG)
     Dates: start: 20090715, end: 20090720
  11. DEXTROAMPHETAMINE [Suspect]
     Indication: NARCOLEPSY
     Dosage: 5 MG, UP TO 4 TIMES DAILY AS NEEDED
     Dates: start: 20090408
  12. DULOXETINE HYDROCHLORIDE [Concomitant]
  13. ETHINYL ESTRADIOL AND NORETHINDRONE [Concomitant]
  14. CLONAZEPAM [Concomitant]
  15. PREGABALIN [Concomitant]
  16. VENLAFAXINE HCL [Concomitant]
  17. DEXTROAMPETAMINE SULFATE TAB [Suspect]
     Indication: NARCOLEPSY
     Dosage: 15 MG (15 MG, 1 IN 1 D)
     Dates: start: 20090408

REACTIONS (28)
  - INFLUENZA [None]
  - PNEUMONIA [None]
  - INTRAOCULAR PRESSURE INCREASED [None]
  - NAUSEA [None]
  - ALOPECIA [None]
  - HUNGER [None]
  - FIBROMYALGIA [None]
  - VISUAL IMPAIRMENT [None]
  - SLEEP PARALYSIS [None]
  - CATAPLEXY [None]
  - POOR QUALITY SLEEP [None]
  - DYSTONIA [None]
  - NEUROPATHY PERIPHERAL [None]
  - RADIAL NERVE PALSY [None]
  - MUSCLE SPASMS [None]
  - DECREASED APPETITE [None]
  - BRONCHITIS [None]
  - HEART RATE INCREASED [None]
  - STRESS [None]
  - NERVE INJURY [None]
  - OVARIAN CYST RUPTURED [None]
  - INITIAL INSOMNIA [None]
  - MUSCLE ATROPHY [None]
  - WEIGHT DECREASED [None]
  - MIGRAINE [None]
  - CRYING [None]
  - HEADACHE [None]
  - TREMOR [None]
